FAERS Safety Report 16243085 (Version 1)
Quarter: 2019Q2

REPORT INFORMATION
  Report Type: Spontaneous
  Country: US (occurrence: US)
  Receive Date: 20190426
  Receipt Date: 20190426
  Transmission Date: 20190711
  Serious: Yes (Hospitalization, Other)
  Sender: FDA-Public Use
  Company Number: US-HIKMA PHARMACEUTICALS USA INC.-US-H14001-19-02689

PATIENT
  Age: 71 Year
  Sex: Female

DRUGS (5)
  1. DURAMORPH [Suspect]
     Active Substance: MORPHINE SULFATE
     Indication: SPINAL ANAESTHESIA
     Dosage: MCG/KG
     Route: 008
  2. ANCEF [Concomitant]
     Active Substance: CEFAZOLIN SODIUM
     Indication: HIP ARTHROPLASTY
     Route: 065
  3. TRANEXAMIC [Concomitant]
     Active Substance: TRANEXAMIC ACID
     Indication: HIP ARTHROPLASTY
     Route: 065
  4. BUPIVACAINE. [Suspect]
     Active Substance: BUPIVACAINE
     Indication: SPINAL ANAESTHESIA
     Route: 008
  5. PROPOFOL. [Concomitant]
     Active Substance: PROPOFOL
     Indication: SEDATION
     Route: 065

REACTIONS (1)
  - Chronic inflammatory demyelinating polyradiculoneuropathy [Unknown]
